FAERS Safety Report 20554676 (Version 2)
Quarter: 2022Q1

REPORT INFORMATION
  Report Type: Report from Study
  Country: IT (occurrence: IT)
  Receive Date: 20220304
  Receipt Date: 20220315
  Transmission Date: 20220423
  Serious: Yes (Other)
  Sender: FDA-Public Use
  Company Number: IT-TAKEDA-2022TUS014333

PATIENT
  Sex: Male
  Weight: 100 kg

DRUGS (33)
  1. ADVATE [Suspect]
     Active Substance: ANTIHEMOPHILIC FACTOR, HUMAN RECOMBINANT
     Indication: Prophylaxis
     Dosage: 3000 INTERNATIONAL UNIT
     Route: 042
  2. ADVATE [Suspect]
     Active Substance: ANTIHEMOPHILIC FACTOR, HUMAN RECOMBINANT
     Indication: Prophylaxis
     Dosage: 3000 INTERNATIONAL UNIT
     Route: 042
  3. ADVATE [Suspect]
     Active Substance: ANTIHEMOPHILIC FACTOR, HUMAN RECOMBINANT
     Indication: Prophylaxis
     Dosage: 3000 INTERNATIONAL UNIT
     Route: 042
  4. ADVATE [Suspect]
     Active Substance: ANTIHEMOPHILIC FACTOR, HUMAN RECOMBINANT
     Indication: Arthralgia
     Dosage: 4000 INTERNATIONAL UNIT, QD
     Route: 065
     Dates: start: 20140917, end: 20140922
  5. ADVATE [Suspect]
     Active Substance: ANTIHEMOPHILIC FACTOR, HUMAN RECOMBINANT
     Indication: Arthralgia
     Dosage: 4000 INTERNATIONAL UNIT, QD
     Route: 065
     Dates: start: 20140917, end: 20140922
  6. ADVATE [Suspect]
     Active Substance: ANTIHEMOPHILIC FACTOR, HUMAN RECOMBINANT
     Indication: Arthralgia
     Dosage: 4000 INTERNATIONAL UNIT, QD
     Route: 065
     Dates: start: 20140917, end: 20140922
  7. ADVATE [Suspect]
     Active Substance: ANTIHEMOPHILIC FACTOR, HUMAN RECOMBINANT
     Indication: Groin pain
     Dosage: 4000 INTERNATIONAL UNIT, QD
     Route: 065
     Dates: start: 20140924, end: 20141010
  8. ADVATE [Suspect]
     Active Substance: ANTIHEMOPHILIC FACTOR, HUMAN RECOMBINANT
     Indication: Groin pain
     Dosage: 4000 INTERNATIONAL UNIT, QD
     Route: 065
     Dates: start: 20140924, end: 20141010
  9. ADVATE [Suspect]
     Active Substance: ANTIHEMOPHILIC FACTOR, HUMAN RECOMBINANT
     Indication: Groin pain
     Dosage: 4000 INTERNATIONAL UNIT, QD
     Route: 065
     Dates: start: 20140924, end: 20141010
  10. ADVATE [Suspect]
     Active Substance: ANTIHEMOPHILIC FACTOR, HUMAN RECOMBINANT
     Dosage: 4000 INTERNATIONAL UNIT, BID
     Route: 065
     Dates: start: 20140910, end: 20140912
  11. ADVATE [Suspect]
     Active Substance: ANTIHEMOPHILIC FACTOR, HUMAN RECOMBINANT
     Dosage: 4000 INTERNATIONAL UNIT, BID
     Route: 065
     Dates: start: 20140910, end: 20140912
  12. ADVATE [Suspect]
     Active Substance: ANTIHEMOPHILIC FACTOR, HUMAN RECOMBINANT
     Dosage: 4000 INTERNATIONAL UNIT, BID
     Route: 065
     Dates: start: 20140910, end: 20140912
  13. ADVATE [Suspect]
     Active Substance: ANTIHEMOPHILIC FACTOR, HUMAN RECOMBINANT
     Dosage: 4000 INTERNATIONAL UNIT, BID
     Route: 065
     Dates: start: 20140916, end: 20140916
  14. ADVATE [Suspect]
     Active Substance: ANTIHEMOPHILIC FACTOR, HUMAN RECOMBINANT
     Dosage: 4000 INTERNATIONAL UNIT, BID
     Route: 065
     Dates: start: 20140916, end: 20140916
  15. ADVATE [Suspect]
     Active Substance: ANTIHEMOPHILIC FACTOR, HUMAN RECOMBINANT
     Dosage: 4000 INTERNATIONAL UNIT, BID
     Route: 065
     Dates: start: 20140916, end: 20140916
  16. ADVATE [Suspect]
     Active Substance: ANTIHEMOPHILIC FACTOR, HUMAN RECOMBINANT
     Dosage: 4000 INTERNATIONAL UNIT, BID
     Route: 065
     Dates: start: 20140923, end: 20140923
  17. ADVATE [Suspect]
     Active Substance: ANTIHEMOPHILIC FACTOR, HUMAN RECOMBINANT
     Dosage: 4000 INTERNATIONAL UNIT, BID
     Route: 065
     Dates: start: 20140923, end: 20140923
  18. ADVATE [Suspect]
     Active Substance: ANTIHEMOPHILIC FACTOR, HUMAN RECOMBINANT
     Dosage: 4000 INTERNATIONAL UNIT, BID
     Route: 065
     Dates: start: 20140923, end: 20140923
  19. ADVATE [Suspect]
     Active Substance: ANTIHEMOPHILIC FACTOR, HUMAN RECOMBINANT
     Dosage: 6000 INTERNATIONAL UNIT, QD
     Route: 065
     Dates: start: 20150529, end: 20150609
  20. ADVATE [Suspect]
     Active Substance: ANTIHEMOPHILIC FACTOR, HUMAN RECOMBINANT
     Dosage: 6000 INTERNATIONAL UNIT, QD
     Route: 065
     Dates: start: 20150529, end: 20150609
  21. ADVATE [Suspect]
     Active Substance: ANTIHEMOPHILIC FACTOR, HUMAN RECOMBINANT
     Dosage: 6000 INTERNATIONAL UNIT, QD
     Route: 065
     Dates: start: 20150529, end: 20150609
  22. AUGMENTIN [Concomitant]
     Active Substance: AMOXICILLIN\CLAVULANATE POTASSIUM
     Indication: Pyrexia
     Dosage: UNK
     Route: 065
     Dates: start: 201804
  23. CANDESARTAN CILEXETIL\HYDROCHLOROTHIAZIDE [Concomitant]
     Active Substance: CANDESARTAN CILEXETIL\HYDROCHLOROTHIAZIDE
     Indication: Hypertension
     Dosage: UNK
     Route: 065
     Dates: start: 201610
  24. DICLOFENAC [Concomitant]
     Active Substance: DICLOFENAC
     Indication: Arthralgia
     Route: 065
  25. CIPROFLOXACIN [Concomitant]
     Active Substance: CIPROFLOXACIN
     Indication: Pyrexia
     Dosage: 600 MILLIGRAM, BID
     Route: 065
     Dates: start: 20180504, end: 20180516
  26. DEXPANTHENOL [Concomitant]
     Active Substance: DEXPANTHENOL
     Indication: Gastrooesophageal reflux disease
     Dosage: UNK
     Route: 065
     Dates: start: 20161027
  27. MODURETIC 5-50 [Concomitant]
     Active Substance: AMILORIDE HYDROCHLORIDE\HYDROCHLOROTHIAZIDE
     Indication: Hypertension
     Dosage: UNK
     Route: 065
  28. OMEPRAZOLE [Concomitant]
     Active Substance: OMEPRAZOLE
     Indication: Gastrointestinal disorder
     Dosage: 20 MILLIGRAM, QD
     Route: 065
  29. OMEPRAZOLE [Concomitant]
     Active Substance: OMEPRAZOLE
     Indication: Dyspepsia
     Dosage: 20 MILLIGRAM, QD
     Route: 065
     Dates: start: 20161027
  30. OMEPRAZOLE [Concomitant]
     Active Substance: OMEPRAZOLE
     Indication: Gastrooesophageal reflux disease
     Dosage: 1 DOSAGE FORM
     Route: 065
  31. PERFALGAN [Concomitant]
     Active Substance: ACETAMINOPHEN
     Indication: Arthralgia
     Dosage: UNK UNK, QD
     Route: 065
     Dates: start: 20140910, end: 20140910
  32. EPROSARTAN MESYLATE\HYDROCHLOROTHIAZIDE [Concomitant]
     Active Substance: EPROSARTAN MESYLATE\HYDROCHLOROTHIAZIDE
     Indication: Hypertension
     Dosage: 16 MILLIGRAM, QD
     Route: 065
  33. EPROSARTAN MESYLATE\HYDROCHLOROTHIAZIDE [Concomitant]
     Active Substance: EPROSARTAN MESYLATE\HYDROCHLOROTHIAZIDE
     Dosage: 12.5 MILLIGRAM, QD
     Route: 065

REACTIONS (1)
  - Vitreous haemorrhage [Recovered/Resolved]
